FAERS Safety Report 20807707 (Version 2)
Quarter: 2022Q2

REPORT INFORMATION
  Report Type: Spontaneous
  Country: US (occurrence: US)
  Receive Date: 20220510
  Receipt Date: 20220516
  Transmission Date: 20220721
  Serious: Yes (Hospitalization, Other)
  Sender: FDA-Public Use
  Company Number: DEX 2022-0065(0)

PATIENT
  Age: 12 Year
  Sex: Male
  Weight: 64 kg

DRUGS (7)
  1. DEXMEDETOMIDINE HYDROCHLORIDE [Suspect]
     Active Substance: DEXMEDETOMIDINE HYDROCHLORIDE
     Indication: Sedative therapy
     Dosage: LODING DOSE, 0.5 UG/KG
     Route: 065
  2. DEXMEDETOMIDINE HYDROCHLORIDE [Suspect]
     Active Substance: DEXMEDETOMIDINE HYDROCHLORIDE
     Dosage: 0.3 UG/KG, 1 HR
     Route: 065
  3. PROPOFOL [Suspect]
     Active Substance: PROPOFOL
     Indication: Induction of anaesthesia
     Dosage: 3 MG/KG
     Route: 065
  4. FENTANYL [Suspect]
     Active Substance: FENTANYL
     Indication: Induction of anaesthesia
     Dosage: 5 UG/KG
     Route: 065
  5. LIDOCAINE [Suspect]
     Active Substance: LIDOCAINE
     Indication: Induction of anaesthesia
     Dosage: 1.5 MG/KG
     Route: 065
  6. ATRACURIUM BESYLATE [Suspect]
     Active Substance: ATRACURIUM BESYLATE
     Indication: Endotracheal intubation
     Dosage: 0.3 MG/KG
     Route: 065
  7. DESFLURANE [Suspect]
     Active Substance: DESFLURANE
     Indication: Sedative therapy
     Dosage: END-TIDAL CONCENTRATION 4-8% TITRATED USING BISPECTRAL INDEX IN COMBO OF OXYGEN AND AIR
     Route: 065

REACTIONS (2)
  - Product administered to patient of inappropriate age [Unknown]
  - Bradycardia [Recovered/Resolved]
